FAERS Safety Report 7802221-4 (Version None)
Quarter: 2011Q4

REPORT INFORMATION
  Report Type: 
  Country: None (occurrence: None)
  Receive Date: 20111007
  Receipt Date: 20110930
  Transmission Date: 20120403
  Serious: Yes (Hospitalization)
  Sender: FDA-Public Use
  Company Number: CZ-JNJFOC-20110909528

PATIENT
  Sex: Female

DRUGS (5)
  1. RISPERDAL CONSTA [Suspect]
     Indication: SCHIZOPHRENIA
     Route: 030
     Dates: start: 20110909
  2. RISPERDAL CONSTA [Suspect]
     Route: 030
     Dates: start: 20110922
  3. RISPERDAL CONSTA [Suspect]
     Route: 030
     Dates: start: 20110923
  4. RISPERIDONE [Concomitant]
     Route: 048
     Dates: end: 20110924
  5. OLANZAPINE [Concomitant]
     Route: 048
     Dates: end: 20110924

REACTIONS (2)
  - OVERDOSE [None]
  - INAPPROPRIATE SCHEDULE OF DRUG ADMINISTRATION [None]
